FAERS Safety Report 9907236 (Version 1)
Quarter: 2014Q1

REPORT INFORMATION
  Report Type: Spontaneous
  Country: GB (occurrence: GB)
  Receive Date: 20140218
  Receipt Date: 20140218
  Transmission Date: 20141002
  Serious: Yes (Other)
  Sender: FDA-Public Use
  Company Number: GB-MYLANLABS-2014S1002617

PATIENT
  Age: 28 Year
  Sex: Female

DRUGS (8)
  1. EPILIM CHRONO /00228502/ [Suspect]
     Indication: BIPOLAR DISORDER
     Route: 048
     Dates: start: 20131105, end: 20131111
  2. EPILIM CHRONO /00228502/ [Suspect]
     Indication: BIPOLAR DISORDER
     Route: 048
     Dates: start: 20131112, end: 20131118
  3. LAMOTRIGINE [Suspect]
     Indication: PRODUCT USED FOR UNKNOWN INDICATION
  4. LAMOTRIGINE [Suspect]
     Indication: PRODUCT USED FOR UNKNOWN INDICATION
     Dates: start: 2012
  5. PRIADEL [Concomitant]
     Indication: BIPOLAR DISORDER
     Route: 048
     Dates: end: 201311
  6. PRIADEL [Concomitant]
     Indication: BIPOLAR DISORDER
     Route: 048
     Dates: start: 201311
  7. ZOLPIDEM [Concomitant]
     Indication: SLEEP DISORDER
     Route: 048
     Dates: start: 2013
  8. ZOLPIDEM [Concomitant]
     Indication: SLEEP DISORDER
     Route: 048

REACTIONS (5)
  - Blindness transient [Recovered/Resolved]
  - Visual impairment [Recovered/Resolved]
  - Diplopia [Recovered/Resolved]
  - Nausea [Unknown]
  - Off label use [Unknown]
